FAERS Safety Report 14703573 (Version 1)
Quarter: 2018Q2

REPORT INFORMATION
  Report Type: Spontaneous
  Country: US (occurrence: US)
  Receive Date: 20180402
  Receipt Date: 20180402
  Transmission Date: 20180711
  Serious: No
  Sender: FDA-Public Use
  Company Number: US-BAYER-2018-054206

PATIENT
  Age: 90 Year
  Sex: Female
  Weight: 46.98 kg

DRUGS (4)
  1. CLARITIN [Suspect]
     Active Substance: LORATADINE
     Indication: UPPER RESPIRATORY TRACT CONGESTION
     Dosage: 1 DF, PRN
     Route: 048
  2. EYE DROPS [Concomitant]
     Active Substance: UNSPECIFIED INGREDIENT
     Dosage: UNK
  3. OXYGEN. [Concomitant]
     Active Substance: OXYGEN
     Dosage: CONTINUAL ALL DAY DOSE
     Route: 055
  4. CLARITIN [Suspect]
     Active Substance: LORATADINE
     Indication: EAR DISORDER

REACTIONS (2)
  - Product use in unapproved indication [Unknown]
  - Off label use [Unknown]

NARRATIVE: CASE EVENT DATE: 201703
